FAERS Safety Report 16227239 (Version 1)
Quarter: 2019Q2

REPORT INFORMATION
  Report Type: Spontaneous
  Country: US (occurrence: US)
  Receive Date: 20190318
  Receipt Date: 20190318
  Transmission Date: 20190711
  Serious: No
  Sender: FDA-Public Use
  Company Number: None

PATIENT
  Age: 79 Year
  Sex: Female

DRUGS (1)
  1. FORTEO [Suspect]
     Active Substance: TERIPARATIDE
     Indication: OSTEOPOROSIS
     Route: 058
     Dates: start: 201810

REACTIONS (4)
  - Device malfunction [None]
  - Thirst [None]
  - Device deployment issue [None]
  - Incorrect dose administered by device [None]

NARRATIVE: CASE EVENT DATE: 20190318
